FAERS Safety Report 9996358 (Version 4)
Quarter: 2014Q2

REPORT INFORMATION
  Report Type: Spontaneous
  Country: US (occurrence: US)
  Receive Date: 20140311
  Receipt Date: 20140428
  Transmission Date: 20141212
  Serious: Yes (Hospitalization)
  Sender: FDA-Public Use
  Company Number: US-GLAXOSMITHKLINE-A1064200A

PATIENT
  Age: 73 Year
  Sex: Female

DRUGS (2)
  1. VOTRIENT [Suspect]
     Indication: MALIGNANT NEOPLASM OF RENAL PELVIS
     Dosage: 800MG PER DAY
     Route: 048
     Dates: start: 20130808
  2. MICAFUNGIN [Concomitant]
     Indication: PRODUCT USED FOR UNKNOWN INDICATION
     Route: 065

REACTIONS (8)
  - Pulmonary cavitation [Recovered/Resolved]
  - Aspergillus infection [Recovered/Resolved]
  - Pneumothorax [Recovered/Resolved]
  - Thoracostomy [Recovered/Resolved]
  - Pulmonary mass [Recovered/Resolved]
  - Vision blurred [Unknown]
  - Intraocular pressure increased [Unknown]
  - Diarrhoea [Unknown]
